FAERS Safety Report 18417997 (Version 1)
Quarter: 2020Q4

REPORT INFORMATION
  Report Type: Other
  Country: US (occurrence: US)
  Receive Date: 20201023
  Receipt Date: 20201023
  Transmission Date: 20210114
  Serious: Yes (Other)
  Sender: FDA-Public Use
  Company Number: US-ROCHE-2691927

PATIENT
  Sex: Female
  Weight: 68.1 kg

DRUGS (14)
  1. DOCUSATE SODIUM. [Concomitant]
     Active Substance: DOCUSATE SODIUM
     Indication: CONSTIPATION
     Dosage: TAKE 1 CAPSULE BY MOUTH 2 TIMES DAILY.
     Route: 048
  2. DULOXETINE. [Concomitant]
     Active Substance: DULOXETINE
     Dosage: TAKE 60MG BY MOUTH DAILY
     Route: 048
  3. ACTEMRA [Suspect]
     Active Substance: TOCILIZUMAB
     Indication: GIANT CELL ARTERITIS
     Dosage: INJECT 162 MG SUBCUTANEOUSLY EVERY 2 WEEK(S)
     Route: 058
  4. ACTEMRA [Suspect]
     Active Substance: TOCILIZUMAB
  5. DILTIAZEM. [Concomitant]
     Active Substance: DILTIAZEM
     Route: 048
  6. CETRIZINE [Concomitant]
     Active Substance: CETIRIZINE HYDROCHLORIDE
     Dosage: TAKE ONE TABLET BY MOUTH DAILY
     Route: 048
  7. BIOTENE DRY MOUTH (UNITED STATES) [Concomitant]
     Dosage: 15MLS BY MOUTH/THROAT ROUTE AS NEEDED
     Route: 048
  8. FUROSEMIDE. [Concomitant]
     Active Substance: FUROSEMIDE
     Dosage: TAKE 1/2 TO 1 TABLET BY MOUTH ONE TIME A DAY
     Route: 048
  9. PREDNISONE. [Concomitant]
     Active Substance: PREDNISONE
     Dosage: TAKE 5MG BY MOUTH DAILY
     Route: 048
  10. BIOTIN [Concomitant]
     Active Substance: BIOTIN
     Dosage: TAKE BY MOUTH DAILY
     Route: 048
  11. TRAMADOL. [Concomitant]
     Active Substance: TRAMADOL
     Indication: PAIN
     Dosage: TAKE 50MG BY MOUTH EVERY 6 HOURS AS NEEDED
     Route: 048
  12. RESTASIS [Concomitant]
     Active Substance: CYCLOSPORINE
     Dosage: 1 DRP 2 TIMES DAILY
  13. SPIRONOLACTONE. [Concomitant]
     Active Substance: SPIRONOLACTONE
     Dosage: TAKE 12.5MG BY MOUTH DAILY
     Route: 048
  14. VALSARTAN. [Concomitant]
     Active Substance: VALSARTAN
     Dosage: TAKE 320MG BY MOUTH DAILY
     Route: 048

REACTIONS (3)
  - Limb injury [Unknown]
  - Joint injury [Unknown]
  - Fall [Unknown]
